FAERS Safety Report 8921190 (Version 1)
Quarter: 2012Q4

REPORT INFORMATION
  Report Type: 
  Country: CH (occurrence: RO)
  Receive Date: 20121123
  Receipt Date: 20121123
  Transmission Date: 20130627
  Serious: Yes (Death, Hospitalization)
  Sender: FDA-Public Use
  Company Number: RO-GENZYME-FLUD-1001591

PATIENT
  Sex: Male
  Weight: 55 kg

DRUGS (4)
  1. FLUDARA [Suspect]
     Indication: MANTLE CELL LYMPHOMA
     Dosage: 40 mg, qd
     Route: 042
     Dates: start: 20111228, end: 20120426
  2. MABTHERA [Suspect]
     Indication: MANTLE CELL LYMPHOMA
     Dosage: 600 mg, qd
     Route: 042
     Dates: start: 20111228, end: 20120424
  3. CYCLOPHOSPHAMIDE [Suspect]
     Indication: MANTLE CELL LYMPHOMA
     Dosage: 32 mg, qd
     Route: 042
     Dates: start: 20111228, end: 20120426
  4. MITOXANTRONE [Suspect]
     Indication: MANTLE CELL LYMPHOMA
     Dosage: 138 mg, qd, one day per cycle of 28 day cycle.
     Route: 042
     Dates: start: 20111228, end: 20120424

REACTIONS (1)
  - Febrile neutropenia [Fatal]
